FAERS Safety Report 10075915 (Version 1)
Quarter: 2014Q1

REPORT INFORMATION
  Report Type: Spontaneous
  Country: US (occurrence: None)
  Receive Date: 20140321
  Receipt Date: 20140321
  Transmission Date: 20141002
  Serious: Yes (Hospitalization, Other)
  Sender: FDA-Public Use
  Company Number: SYM-2014-18655

PATIENT
  Sex: Female

DRUGS (2)
  1. EFUDEX [Suspect]
     Indication: SQUAMOUS CELL CARCINOMA
     Route: 061
  2. CLONIDINE (CLONIDINE) [Suspect]
     Indication: HYPERTENSION

REACTIONS (8)
  - Dementia [None]
  - Dizziness [None]
  - Chills [None]
  - Hyperhidrosis [None]
  - Insomnia [None]
  - Confusional state [None]
  - Diarrhoea [None]
  - Cerebrovascular accident [None]
